FAERS Safety Report 19062003 (Version 6)
Quarter: 2022Q2

REPORT INFORMATION
  Report Type: Spontaneous
  Country: JP (occurrence: JP)
  Receive Date: 20210326
  Receipt Date: 20220429
  Transmission Date: 20220721
  Serious: Yes (Other)
  Sender: FDA-Public Use
  Company Number: JP-TEVA-2021-JP-1894171

PATIENT
  Age: 63 Year
  Sex: Female

DRUGS (9)
  1. TRISENOX [Suspect]
     Active Substance: ARSENIC TRIOXIDE
     Indication: Acute promyelocytic leukaemia
     Dosage: 9.75 MILLIGRAM DAILY; INDUCTION THERAPY.
     Route: 042
     Dates: start: 20210117, end: 20210207
  2. TRISENOX [Suspect]
     Active Substance: ARSENIC TRIOXIDE
     Dosage: CONSOLIDATION THERAPY.
     Route: 042
     Dates: start: 20210309, end: 20210309
  3. LYRICA [Suspect]
     Active Substance: PREGABALIN
     Indication: Herpes zoster
     Dosage: 50 MILLIGRAM DAILY; 50 MG (50 MG/24 HOURS)
     Route: 048
     Dates: start: 20210309, end: 20210309
  4. NEUROTROPIN [Suspect]
     Active Substance: NEUROTROPIN
     Indication: Herpes zoster
     Dosage: 160 IU (INTERNATIONAL UNIT) DAILY; 160 IU (160 IU/24 HOURS)
     Route: 048
     Dates: start: 20210309, end: 20210309
  5. MICAFUNGIN SODIUM [Concomitant]
     Active Substance: MICAFUNGIN SODIUM
     Indication: Infection prophylaxis
     Dates: start: 20210226, end: 20210317
  6. SOYBEAN OIL [Concomitant]
     Active Substance: SOYBEAN OIL
     Indication: Feeding disorder
     Dates: start: 20210226, end: 20210316
  7. GRANISETRON [Concomitant]
     Active Substance: GRANISETRON
     Indication: Antiemetic supportive care
     Dosage: 3 MG
     Dates: start: 20210309, end: 20210309
  8. ACETAMINOPHEN [Concomitant]
     Active Substance: ACETAMINOPHEN
     Indication: Herpes zoster
     Dosage: 1000 MG
     Dates: start: 20210228, end: 20210315
  9. ACYCLOVIR [Concomitant]
     Active Substance: ACYCLOVIR
     Indication: Hypertension
     Dosage: 200 MG
     Dates: start: 20210308, end: 20210311

REACTIONS (3)
  - Acute kidney injury [Recovered/Resolved]
  - Erythema [Recovered/Resolved]
  - Blood pressure decreased [Recovered/Resolved]

NARRATIVE: CASE EVENT DATE: 20210310
